FAERS Safety Report 15391934 (Version 5)
Quarter: 2018Q4

REPORT INFORMATION
  Report Type: Spontaneous
  Country: US (occurrence: US)
  Receive Date: 20180917
  Receipt Date: 20181115
  Transmission Date: 20190204
  Serious: Yes (Hospitalization)
  Sender: FDA-Public Use
  Company Number: US-PFIZER INC-2018370882

PATIENT
  Sex: Female

DRUGS (3)
  1. XANAX [Suspect]
     Active Substance: ALPRAZOLAM
     Indication: INSOMNIA
     Dosage: 2 MG, DAILY[AT BEDTIME]
  2. ALPRAZOLAM. [Suspect]
     Active Substance: ALPRAZOLAM
     Indication: INSOMNIA
     Dosage: UNK
  3. AMBIEN [Suspect]
     Active Substance: ZOLPIDEM TARTRATE
     Indication: INSOMNIA
     Dosage: 5 MG, UNK

REACTIONS (12)
  - Dehydration [Not Recovered/Not Resolved]
  - Irritable bowel syndrome [Unknown]
  - Malaise [Unknown]
  - Nausea [Unknown]
  - Blood disorder [Unknown]
  - Musculoskeletal pain [Not Recovered/Not Resolved]
  - Diarrhoea [Unknown]
  - Depression [Unknown]
  - Accident [Unknown]
  - Nervous system disorder [Unknown]
  - Product use in unapproved indication [Unknown]
  - Amnesia [Unknown]
